FAERS Safety Report 9135553 (Version 1)
Quarter: 2013Q1

REPORT INFORMATION
  Report Type: Spontaneous
  Country: US (occurrence: US)
  Receive Date: 20130219
  Receipt Date: 20130219
  Transmission Date: 20140127
  Serious: No
  Sender: FDA-Public Use
  Company Number: US-BRISTOL-MYERS SQUIBB COMPANY-16766966

PATIENT
  Age: 64 Year
  Sex: Female
  Weight: 58.96 kg

DRUGS (1)
  1. ORENCIA [Suspect]
     Indication: RHEUMATOID ARTHRITIS
     Dosage: PRESCRIPTION #: 07188143,LAST DOSE ON7JUL12
     Route: 058
     Dates: start: 20120521

REACTIONS (4)
  - Fatigue [Unknown]
  - Night sweats [Unknown]
  - Influenza like illness [Unknown]
  - Muscle tightness [Unknown]
